FAERS Safety Report 11191657 (Version 1)
Quarter: 2015Q2

REPORT INFORMATION
  Report Type: Spontaneous
  Country: US (occurrence: None)
  Receive Date: 20150615
  Receipt Date: 20150615
  Transmission Date: 20150821
  Serious: Yes (Death)
  Sender: FDA-Public Use
  Company Number: None

PATIENT
  Sex: Male
  Weight: 20 kg

DRUGS (2)
  1. ONDANSETRON [Suspect]
     Active Substance: ONDANSETRON
     Indication: VOMITING
     Dosage: 3 MG (3.75 ML) BID PRN
     Route: 048
     Dates: start: 20150219, end: 20150222
  2. IBUPROFEN. [Concomitant]
     Active Substance: IBUPROFEN

REACTIONS (4)
  - Cardio-respiratory arrest [None]
  - Electrocardiogram QT prolonged [None]
  - Ventricular tachycardia [None]
  - Arrhythmia [None]
